FAERS Safety Report 25731876 (Version 5)
Quarter: 2025Q4

REPORT INFORMATION
  Report Type: Spontaneous
  Country: JP (occurrence: JP)
  Receive Date: 20250827
  Receipt Date: 20251218
  Transmission Date: 20260118
  Serious: Yes (Death, Life-Threatening, Hospitalization, Other)
  Sender: DAIICHI
  Company Number: JP-DAIICHI SANKYO, INC.-DS-2025-149423-JP

PATIENT
  Age: 71 Year
  Sex: Female
  Weight: 70.9 kg

DRUGS (26)
  1. DATROWAY [Suspect]
     Active Substance: DATOPOTAMAB DERUXTECAN-DLNK
     Indication: Hormone receptor positive HER2 negative breast cancer
     Dosage: 6 MG/KG
     Route: 065
     Dates: start: 20250414, end: 20250414
  2. DATROWAY [Suspect]
     Active Substance: DATOPOTAMAB DERUXTECAN-DLNK
     Dosage: 6 MG/KG
     Route: 065
     Dates: start: 20250512, end: 20250512
  3. DATROWAY [Suspect]
     Active Substance: DATOPOTAMAB DERUXTECAN-DLNK
     Dosage: 6 MG/KG
     Route: 065
     Dates: start: 20250602, end: 20250602
  4. SOLU-MEDROL [Suspect]
     Active Substance: METHYLPREDNISOLONE SODIUM SUCCINATE
     Indication: Product used for unknown indication
     Dosage: 500 MG, QD
     Route: 041
     Dates: start: 20250623, end: 20250625
  5. SOLU-MEDROL [Suspect]
     Active Substance: METHYLPREDNISOLONE SODIUM SUCCINATE
     Dosage: 80 MG, QD
     Route: 041
     Dates: start: 20250626, end: 20250630
  6. SOLU-MEDROL [Suspect]
     Active Substance: METHYLPREDNISOLONE SODIUM SUCCINATE
     Dosage: 40 MG/DAY
     Route: 041
     Dates: start: 20250701, end: 20250707
  7. SOLU-MEDROL [Suspect]
     Active Substance: METHYLPREDNISOLONE SODIUM SUCCINATE
     Dosage: 20 MG/DAY
     Route: 041
     Dates: start: 20250910, end: 20250924
  8. SOLU-MEDROL [Suspect]
     Active Substance: METHYLPREDNISOLONE SODIUM SUCCINATE
     Dosage: 1000MG/DAY
     Route: 041
     Dates: start: 20250925
  9. PREDONINE [Suspect]
     Active Substance: PREDNISOLONE
     Indication: Product used for unknown indication
     Dosage: 30 MG/DAY
     Route: 048
     Dates: start: 20250708, end: 20250728
  10. PREDONINE [Suspect]
     Active Substance: PREDNISOLONE
     Dosage: 25 MG/DAY
     Route: 048
     Dates: start: 20250729, end: 20250909
  11. DABIGATRAN ETEXILATE MESYLATE [Suspect]
     Active Substance: DABIGATRAN ETEXILATE MESYLATE
     Indication: Embolic stroke
     Dosage: 110 MG, BID
     Route: 048
  12. CARBOCYSTEINE [Concomitant]
     Active Substance: CARBOCYSTEINE
     Indication: Product used for unknown indication
     Dosage: 500 MG, BID
     Route: 065
     Dates: start: 20250602
  13. DEQUALINIUM CHLORIDE [Concomitant]
     Active Substance: DEQUALINIUM CHLORIDE
     Indication: Product used for unknown indication
     Dosage: 0.25 MG, AS NEEDED
     Route: 065
     Dates: start: 20250602
  14. HERBALS [Concomitant]
     Active Substance: HERBALS
     Indication: Hormone receptor positive HER2 negative breast cancer
     Dosage: 2.5 G, BID
     Route: 065
  15. HERBALS [Concomitant]
     Active Substance: HERBALS
     Indication: Hormone receptor positive HER2 negative breast cancer
     Dosage: 2.5 G, BID
     Route: 065
  16. ICOSAPENT ETHYL [Concomitant]
     Active Substance: ICOSAPENT ETHYL
     Indication: Hyperlipidaemia
     Dosage: 2 PACKETS/DAY
     Route: 065
  17. BIOFERMIN [BIFIDOBACTERIUM BIFIDUM] [Concomitant]
     Indication: Product used for unknown indication
     Dosage: UNK
     Route: 065
  18. CALCIUM CARBONATE\CHOLECALCIFEROL\MAGNESIUM CARBONATE [Concomitant]
     Active Substance: CALCIUM CARBONATE\CHOLECALCIFEROL\MAGNESIUM CARBONATE
     Indication: Hormone receptor positive HER2 negative breast cancer
     Dosage: 2 TABLETS, QD
     Route: 065
  19. LEVETIRACETAM [Concomitant]
     Active Substance: LEVETIRACETAM
     Indication: Embolic stroke
     Dosage: 500 MG, QD
     Route: 065
  20. AMLODIPINE BESYLATE\AZILSARTAN [Concomitant]
     Active Substance: AMLODIPINE BESYLATE\AZILSARTAN
     Indication: Hypertension
     Dosage: 5 MG, QD
     Route: 065
  21. NEXIUM [Concomitant]
     Active Substance: ESOMEPRAZOLE MAGNESIUM
     Indication: Product used for unknown indication
     Dosage: 20 MG, QD
     Route: 065
  22. SODIUM GUALENATE MONOHYDRATE [Concomitant]
     Active Substance: SODIUM GUALENATE MONOHYDRATE
     Indication: Fistula
     Dosage: UNK
     Route: 050
  23. WHITE PETROLATUM [Concomitant]
     Active Substance: PETROLATUM
     Indication: Product used for unknown indication
     Dosage: UNK, AS NEEDED
     Route: 003
  24. SOFT SANTEAR [Concomitant]
     Indication: Prophylaxis
     Dosage: UNK
     Route: 047
     Dates: start: 202504
  25. CALCIUM CHLORIDE\POTASSIUM CHLORIDE\SODIUM ACETATE\SODIUM CHLORIDE [Concomitant]
     Active Substance: CALCIUM CHLORIDE\POTASSIUM CHLORIDE\SODIUM ACETATE\SODIUM CHLORIDE
     Indication: Product used for unknown indication
     Dosage: 500 ML
     Route: 041
     Dates: start: 20250623
  26. LEVOFLOXACIN HEMIHYDRATE [Concomitant]
     Active Substance: LEVOFLOXACIN
     Indication: Product used for unknown indication
     Dosage: 250 MG, QD
     Route: 041
     Dates: start: 20250623

REACTIONS (10)
  - Interstitial lung disease [Fatal]
  - Anaemia [Recovering/Resolving]
  - Melaena [Recovered/Resolved]
  - Cardiac failure [Unknown]
  - Anuria [Unknown]
  - Disseminated intravascular coagulation [Fatal]
  - Procedural shock [Unknown]
  - Procedural shock [Unknown]
  - Herpes zoster [Unknown]
  - Platelet count decreased [Unknown]

NARRATIVE: CASE EVENT DATE: 20250623
